FAERS Safety Report 4480757-4 (Version None)
Quarter: 2004Q4

REPORT INFORMATION
  Report Type: 
  Country: None (occurrence: None)
  Receive Date: 20041019
  Receipt Date: 20041007
  Transmission Date: 20050328
  Serious: Yes (Hospitalization)
  Sender: FDA-Public Use
  Company Number: ENDC20040052

PATIENT
  Age: 68 Year
  Sex: Female
  Weight: 68.0396 kg

DRUGS (3)
  1. ENDOCET [Suspect]
     Indication: POST PROCEDURAL PAIN
     Dosage: 1 TAB Q4HR PRN PO
     Route: 048
     Dates: start: 20040901, end: 20040902
  2. HYDROCODONE/ACETAMINOPHEN 7.5/750MG WATSON [Suspect]
     Indication: POST PROCEDURAL PAIN
     Dosage: 1 TAB PRN PO
     Route: 048
     Dates: start: 20040903, end: 20040904
  3. AVALIDE [Concomitant]

REACTIONS (2)
  - HEPATITIS [None]
  - PRURITUS GENERALISED [None]
